FAERS Safety Report 24630685 (Version 1)
Quarter: 2024Q4

REPORT INFORMATION
  Report Type: Spontaneous
  Country: GB (occurrence: GB)
  Receive Date: 20241118
  Receipt Date: 20241118
  Transmission Date: 20250115
  Serious: Yes (Other)
  Sender: TEVA
  Company Number: GB-MHRA-TPP13495108C21341132YC1730981430192

PATIENT
  Age: 23 Year
  Sex: Female
  Weight: 111 kg

DRUGS (4)
  1. SUMATRIPTAN [Suspect]
     Active Substance: SUMATRIPTAN
     Indication: Ill-defined disorder
     Dosage: AS SOON AS POSSIBLE AFTER ONSET REPEAT.; DURATION: 7 DAYS
     Route: 065
     Dates: start: 20241030, end: 20241105
  2. METOCLOPRAMIDE [Concomitant]
     Active Substance: METOCLOPRAMIDE
     Indication: Ill-defined disorder
     Dosage: TIME INTERVAL: 0.33333333 DAYS: DAILY DOSE: 1 DOSAGE FORM
     Dates: start: 20241107
  3. DESOGESTREL [Concomitant]
     Active Substance: DESOGESTREL
     Indication: Ill-defined disorder
     Dosage: DAILY DOSE: 1 DOSAGE FORM
     Dates: start: 20241107
  4. PENICILLIN V [Concomitant]
     Active Substance: PENICILLIN V
     Indication: Ill-defined disorder
     Dosage: DAILY DOSE: 8 DOSAGE FORM; DURATION: 10 DAYS
     Dates: start: 20240903, end: 20240913

REACTIONS (1)
  - Anaphylactoid reaction [Unknown]
